FAERS Safety Report 7226222-2 (Version None)
Quarter: 2011Q1

REPORT INFORMATION
  Report Type: 
  Country: None (occurrence: None)
  Receive Date: 20110114
  Receipt Date: 20110104
  Transmission Date: 20110831
  Serious: Yes (Hospitalization)
  Sender: FDA-Public Use
  Company Number: PHHY2011US00879

PATIENT
  Age: 60 Year
  Sex: Male

DRUGS (5)
  1. INDERAL [Concomitant]
  2. ALDACTONE [Concomitant]
  3. RECLAST [Suspect]
     Indication: OSTEOPOROSIS
     Dosage: 5 MG/100 ML YEARLY
     Route: 042
     Dates: start: 20101210
  4. ASACOL [Concomitant]
  5. PURINETHOL [Concomitant]

REACTIONS (2)
  - BLOOD PHOSPHORUS DECREASED [None]
  - ASTHENIA [None]
